FAERS Safety Report 7342933-2 (Version None)
Quarter: 2011Q1

REPORT INFORMATION
  Report Type: 
  Country: None (occurrence: None)
  Receive Date: 20110228
  Receipt Date: 20110214
  Transmission Date: 20110831
  Serious: Yes (Other)
  Sender: FDA-Public Use
  Company Number: DSA_44999_2011

PATIENT
  Sex: Female

DRUGS (1)
  1. ELONTRIL (ELONTRIL - BUPROPION HYDROCHLORIDE TABLET-EXTENDED RELEASE) [Suspect]
     Indication: PRODUCT USED FOR UNKNOWN INDICATION
     Dosage: (DF ORAL)
     Route: 048
     Dates: start: 20080101

REACTIONS (1)
  - DIABETES MELLITUS [None]
